FAERS Safety Report 11334741 (Version 1)
Quarter: 2015Q3

REPORT INFORMATION
  Report Type: Spontaneous
  Country: DE (occurrence: DE)
  Receive Date: 20150804
  Receipt Date: 20150804
  Transmission Date: 20151125
  Serious: Yes (Other)
  Sender: FDA-Public Use
  Company Number: DE-ACCORD-032798

PATIENT
  Age: 66 Year
  Sex: Male
  Weight: 74 kg

DRUGS (3)
  1. FLUOROURACIL. [Concomitant]
     Active Substance: FLUOROURACIL
     Indication: COLORECTAL CANCER METASTATIC
     Dosage: ALSO RECEIVED ON 08-MAY-2015.?ADMINISTRATION UNDER FOLFIRI ON 08-MAY-2015.
     Route: 041
     Dates: start: 20150526, end: 20150616
  2. FOLINIC ACID [Concomitant]
     Active Substance: LEUCOVORIN
     Dosage: ADMINISTRATION UNDER FOLFIRI ON 08-MAY-2015
     Dates: start: 20150508
  3. IRINOTECAN [Suspect]
     Active Substance: IRINOTECAN
     Indication: PRODUCT USED FOR UNKNOWN INDICATION
     Dosage: ALSO ADMINISTERED UNDER FOLFIRI ON 08-MAY-2015.

REACTIONS (3)
  - Azotaemia [Recovered/Resolved]
  - Renal failure [Recovered/Resolved]
  - Infection [Unknown]

NARRATIVE: CASE EVENT DATE: 20150624
